FAERS Safety Report 4602400-3 (Version None)
Quarter: 2005Q1

REPORT INFORMATION
  Report Type: 
  Country: None (occurrence: None)
  Receive Date: 20050307
  Receipt Date: 20050218
  Transmission Date: 20050727
  Serious: Yes (Death, Other)
  Sender: FDA-Public Use
  Company Number: 2005035828

PATIENT
  Age: 81 Year
  Sex: Female
  Weight: 70.3075 kg

DRUGS (4)
  1. CELEBREX [Suspect]
     Indication: ARTHRITIS
     Dosage: 200 MG (200 MG, 1 IN 1 D), ORAL
     Route: 048
     Dates: start: 20000118
  2. ANTIBIOTICS (ANTIBIOTICS) [Concomitant]
  3. PREDNISOLONE ACETATE [Concomitant]
  4. RISEDRONATE SODIUM (RISEDRONATE SODIUM) [Concomitant]

REACTIONS (1)
  - MYOCARDIAL INFARCTION [None]
